FAERS Safety Report 10951975 (Version 1)
Quarter: 2015Q1

REPORT INFORMATION
  Report Type: Spontaneous
  Country: US (occurrence: US)
  Receive Date: 20150325
  Receipt Date: 20150325
  Transmission Date: 20150721
  Serious: Yes (Death, Other)
  Sender: FDA-Public Use
  Company Number: US-CIPLA LTD.-2015US02212

PATIENT

DRUGS (7)
  1. LIDOCAINE. [Suspect]
     Active Substance: LIDOCAINE
  2. SERTRALINE [Suspect]
     Active Substance: SERTRALINE HYDROCHLORIDE
     Dosage: 0.13 MCG/ML IN BLOOD
  3. CARBON MONOXIDE [Suspect]
     Active Substance: CARBON MONOXIDE
     Dosage: 45 % IN WHOLE BLOOD (CARBOXYHEMOGLOBIN ANALYTE )
  4. CAFFEINE. [Suspect]
     Active Substance: CAFFEINE
  5. METOPROLOL [Suspect]
     Active Substance: METOPROLOL
  6. COTININE [Suspect]
     Active Substance: COTININE
     Dosage: IN URINE
  7. AMITRIPTYLINE [Suspect]
     Active Substance: AMITRIPTYLINE

REACTIONS (3)
  - Environmental exposure [Fatal]
  - Respiratory arrest [Unknown]
  - Cardiac arrest [Unknown]
